FAERS Safety Report 20483848 (Version 2)
Quarter: 2022Q1

REPORT INFORMATION
  Report Type: Report from Study
  Country: CA (occurrence: CA)
  Receive Date: 20220217
  Receipt Date: 20220311
  Transmission Date: 20220423
  Serious: Yes (Death, Hospitalization)
  Sender: FDA-Public Use
  Company Number: CA-HLS-202200303

PATIENT
  Age: 68 Year
  Sex: Female

DRUGS (1)
  1. CLOZARIL [Suspect]
     Active Substance: CLOZAPINE
     Indication: Product used for unknown indication
     Route: 048
     Dates: start: 20130712, end: 20211227

REACTIONS (3)
  - Bronchomalacia [Fatal]
  - COVID-19 pneumonia [Fatal]
  - Death [Fatal]

NARRATIVE: CASE EVENT DATE: 20211227
